FAERS Safety Report 8924347 (Version 1)
Quarter: 2012Q4

REPORT INFORMATION
  Report Type: 
  Country: US (occurrence: US)
  Receive Date: 20121126
  Receipt Date: 20121126
  Transmission Date: 20130627
  Serious: Yes (Other)
  Sender: FDA-Public Use
  Company Number: US-ASTRAZENECA-2012SE87329

PATIENT
  Age: 605 Month
  Sex: Female

DRUGS (11)
  1. CRESTOR [Suspect]
     Route: 048
  2. LOPRESSOR [Suspect]
     Route: 048
  3. METFORMIN [Suspect]
     Route: 065
  4. LISINOPRIL [Suspect]
     Route: 048
  5. LANTUS [Suspect]
     Route: 065
  6. TRICOR [Suspect]
     Route: 065
  7. GLYBURIDE [Suspect]
     Route: 065
  8. CELEXA [Suspect]
     Route: 065
  9. DILTIAZEM [Suspect]
     Route: 065
  10. VISTARIL [Suspect]
     Route: 065
  11. XANAX [Suspect]
     Route: 065

REACTIONS (2)
  - Cerebrovascular accident [Unknown]
  - Drug hypersensitivity [Unknown]
